FAERS Safety Report 7658586-X (Version None)
Quarter: 2011Q3

REPORT INFORMATION
  Report Type: 
  Country: None (occurrence: None)
  Receive Date: 20110805
  Receipt Date: 20100419
  Transmission Date: 20111222
  Serious: Yes (Hospitalization)
  Sender: FDA-Public Use
  Company Number: US-RANBAXY-2008RR-15387

PATIENT

DRUGS (8)
  1. DOPAMINE HCL [Concomitant]
  2. EPINEPHRINE [Concomitant]
  3. PHOSPHENYTOIN [Concomitant]
  4. MIDAZOLAM HCL [Suspect]
     Dosage: 200 UG/KG, UNK
  5. PHENYLEPHRINE HCL [Concomitant]
  6. MIDAZOLAM HCL [Suspect]
     Dosage: 15 UG/KG, UNK
  7. PHENOBARBITAL TAB [Concomitant]
  8. OXCARBAZEPINE [Concomitant]

REACTIONS (1)
  - METABOLIC ACIDOSIS [None]
